FAERS Safety Report 12291046 (Version 1)
Quarter: 2016Q2

REPORT INFORMATION
  Report Type: Spontaneous
  Country: AU (occurrence: AU)
  Receive Date: 20160421
  Receipt Date: 20160421
  Transmission Date: 20160815
  Serious: Yes (Hospitalization)
  Sender: FDA-Public Use
  Company Number: AU-DEPOMED, INC.-AU-2016DEP009350

PATIENT
  Age: 19 Year
  Sex: Female

DRUGS (16)
  1. PROPOFOL. [Concomitant]
     Active Substance: PROPOFOL
     Dosage: UNK
     Route: 042
  2. MIDAZOLAM                          /00634102/ [Concomitant]
     Active Substance: MIDAZOLAM\MIDAZOLAM HYDROCHLORIDE
     Indication: GENERAL ANAESTHESIA
     Dosage: 2 MG, SINGLE
     Route: 055
  3. BUPIVACAINE. [Concomitant]
     Active Substance: BUPIVACAINE
     Indication: PRODUCT USED FOR UNKNOWN INDICATION
     Dosage: 15 MG, UNK
  4. DEXAMETHASONE. [Concomitant]
     Active Substance: DEXAMETHASONE
     Indication: PRODUCT USED FOR UNKNOWN INDICATION
     Dosage: 8 MG, UNK
  5. AMITRIPTYLINE                      /00002202/ [Suspect]
     Active Substance: AMITRIPTYLINE
     Indication: PRODUCT USED FOR UNKNOWN INDICATION
     Dosage: 25 MG, UNK
  6. PARECOXIB [Concomitant]
     Active Substance: PARECOXIB
     Indication: PRODUCT USED FOR UNKNOWN INDICATION
     Dosage: 40 MG, UNK
  7. CITALOPRAM [Suspect]
     Active Substance: CITALOPRAM HYDROBROMIDE
     Indication: PRODUCT USED FOR UNKNOWN INDICATION
     Dosage: 60 MG, UNK
  8. FENTANYL CITRATE. [Suspect]
     Active Substance: FENTANYL CITRATE
     Indication: ENDOTRACHEAL INTUBATION
     Dosage: 100 ?G, SINGLE
     Route: 042
  9. SEVOFLURANE. [Concomitant]
     Active Substance: SEVOFLURANE
     Indication: GENERAL ANAESTHESIA
     Dosage: UNK
  10. PROPOFOL. [Concomitant]
     Active Substance: PROPOFOL
     Indication: GENERAL ANAESTHESIA
     Dosage: 125 MG, SINGLE
     Route: 055
  11. PROPOFOL. [Concomitant]
     Active Substance: PROPOFOL
     Indication: ENDOTRACHEAL INTUBATION
     Dosage: 50 MG, SINGLE
  12. FENTANYL CITRATE. [Suspect]
     Active Substance: FENTANYL CITRATE
     Indication: GENERAL ANAESTHESIA
     Dosage: 75 ?G, SINGLE
     Route: 042
  13. CEFAZOLIN [Concomitant]
     Active Substance: CEFAZOLIN
     Indication: PRODUCT USED FOR UNKNOWN INDICATION
     Dosage: 1 G, UNK
  14. ONDANSETRON [Concomitant]
     Active Substance: ONDANSETRON
     Indication: PRODUCT USED FOR UNKNOWN INDICATION
     Dosage: 4 MG, UNK
  15. FENTANYL CITRATE. [Suspect]
     Active Substance: FENTANYL CITRATE
     Dosage: 80 ?G, SINGLE
     Route: 042
  16. PANTOPRAZOLE                       /01263204/ [Concomitant]
     Active Substance: PANTOPRAZOLE SODIUM
     Indication: PRODUCT USED FOR UNKNOWN INDICATION
     Dosage: 20 MG, UNK

REACTIONS (14)
  - Tachycardia [Recovered/Resolved]
  - Muscle contractions involuntary [Recovered/Resolved]
  - Respiratory disorder [Recovered/Resolved]
  - Hyperreflexia [Recovered/Resolved]
  - Serotonin syndrome [Recovered/Resolved]
  - Encephalopathy [Recovered/Resolved]
  - Drug interaction [Recovered/Resolved]
  - Clonus [Recovered/Resolved]
  - Hypertension [Recovered/Resolved]
  - Hypertonia [Recovered/Resolved]
  - Hypoxia [Recovered/Resolved]
  - Trismus [Recovered/Resolved]
  - Oxygen saturation decreased [Recovered/Resolved]
  - Motor dysfunction [Recovered/Resolved]
